FAERS Safety Report 16573240 (Version 2)
Quarter: 2019Q3

REPORT INFORMATION
  Report Type: Spontaneous
  Country: FR (occurrence: FR)
  Receive Date: 20190715
  Receipt Date: 20190719
  Transmission Date: 20191004
  Serious: Yes (Hospitalization)
  Sender: FDA-Public Use
  Company Number: FR-BAUSCH-BL-2019-019680

PATIENT
  Age: 82 Year
  Sex: Female

DRUGS (5)
  1. IZALGI [Suspect]
     Active Substance: ACETAMINOPHEN\OPIUM
     Indication: PAIN
     Route: 048
     Dates: end: 20190514
  2. XEROQUEL [Suspect]
     Active Substance: QUETIAPINE FUMARATE
     Indication: PSYCHOTIC DISORDER
     Route: 048
  3. FAMOTIDINE. [Suspect]
     Active Substance: FAMOTIDINE
     Indication: ULCER
     Route: 048
     Dates: end: 20190515
  4. LAMALINE (ATROPA BELLADONNA EXTRACT\CAFFEINE\PAPAVER SOMNIFERUM TINCTURE\PARACETAMOL) [Suspect]
     Active Substance: ACETAMINOPHEN\BELLADONNA LEAF\CAFFEINE\OPIUM
     Indication: PAIN
     Route: 048
     Dates: end: 20190514
  5. SERTRALINE (CHLORHYDRATE DE) [Suspect]
     Active Substance: SERTRALINE HYDROCHLORIDE
     Indication: DEPRESSION
     Route: 048

REACTIONS (2)
  - Faecaloma [Recovered/Resolved]
  - Intestinal obstruction [Recovered/Resolved]

NARRATIVE: CASE EVENT DATE: 20190514
